FAERS Safety Report 21971950 (Version 1)
Quarter: 2023Q1

REPORT INFORMATION
  Report Type: Spontaneous
  Country: CZ (occurrence: CZ)
  Receive Date: 20230209
  Receipt Date: 20230209
  Transmission Date: 20230418
  Serious: Yes (Other)
  Sender: FDA-Public Use
  Company Number: CZ-Accord-034141

PATIENT
  Age: 65 Year
  Sex: Female
  Weight: 75.00 kg

DRUGS (1)
  1. TOPOTECAN [Suspect]
     Active Substance: TOPOTECAN HYDROCHLORIDE
     Indication: Ovarian epithelial cancer
     Dates: start: 201409

REACTIONS (3)
  - Pancytopenia [Unknown]
  - Polyuria [Unknown]
  - Polydipsia [Unknown]
